FAERS Safety Report 7039396-3 (Version None)
Quarter: 2010Q4

REPORT INFORMATION
  Report Type: 
  Country: None (occurrence: None)
  Receive Date: 20101012
  Receipt Date: 20101012
  Transmission Date: 20110411
  Serious: Yes (Other)
  Sender: FDA-Public Use
  Company Number: None

PATIENT
  Sex: Female
  Weight: 61.2356 kg

DRUGS (2)
  1. MIFEPREX [Suspect]
     Indication: ABORTION INDUCED INCOMPLETE
     Dosage: PO
     Route: 048
     Dates: start: 20100615, end: 20100615
  2. MISOPROSTOL [Suspect]
     Indication: ABORTION INDUCED INCOMPLETE
     Dosage: PO
     Route: 048
     Dates: start: 20100616, end: 20100616

REACTIONS (4)
  - ABORTION INDUCED [None]
  - DRUG EFFECT DECREASED [None]
  - DRUG EXPOSURE DURING PREGNANCY [None]
  - HAEMORRHAGE [None]
